FAERS Safety Report 22259954 (Version 1)
Quarter: 2023Q2

REPORT INFORMATION
  Report Type: Spontaneous
  Country: AR (occurrence: AR)
  Receive Date: 20230427
  Receipt Date: 20230427
  Transmission Date: 20230722
  Serious: Yes (Other)
  Sender: FDA-Public Use
  Company Number: AR-PFIZER INC-202300157465

PATIENT
  Age: 74 Year
  Sex: Male

DRUGS (3)
  1. VIZIMPRO [Suspect]
     Active Substance: DACOMITINIB
     Indication: Lung cancer metastatic
     Dosage: 45 MG, DAILY
     Dates: start: 202103
  2. VIZIMPRO [Suspect]
     Active Substance: DACOMITINIB
     Dosage: 30 MG, DAILY
  3. VIZIMPRO [Suspect]
     Active Substance: DACOMITINIB
     Dosage: 15 MG, DAILY

REACTIONS (8)
  - Nail disorder [Not Recovered/Not Resolved]
  - Skin disorder [Unknown]
  - Skin erosion [Recovering/Resolving]
  - Neoplasm progression [Unknown]
  - Diarrhoea [Unknown]
  - Gastrointestinal inflammation [Not Recovered/Not Resolved]
  - Gait disturbance [Recovering/Resolving]
  - Loss of personal independence in daily activities [Recovering/Resolving]

NARRATIVE: CASE EVENT DATE: 20210101
